FAERS Safety Report 13226177 (Version 1)
Quarter: 2017Q1

REPORT INFORMATION
  Report Type: Spontaneous
  Country: US (occurrence: US)
  Receive Date: 20170213
  Receipt Date: 20170213
  Transmission Date: 20170428
  Serious: Yes (Other)
  Sender: FDA-Public Use
  Company Number: None

PATIENT
  Age: 41 Year
  Sex: Male
  Weight: 92.25 kg

DRUGS (2)
  1. CVS PHARMACY TOOTHACHE RELIEVER [Suspect]
     Active Substance: BENZALKONIUM CHLORIDE\BENZOCAINE
     Indication: SENSITIVITY OF TEETH
     Route: 048
     Dates: start: 20170211, end: 20170212
  2. TOOTH ACHE MEDICINE [Concomitant]

REACTIONS (2)
  - Pain [None]
  - Nerve injury [None]

NARRATIVE: CASE EVENT DATE: 20170212
